FAERS Safety Report 20697701 (Version 3)
Quarter: 2022Q2

REPORT INFORMATION
  Report Type: Report from Study
  Country: FR (occurrence: None)
  Receive Date: 20220411
  Receipt Date: 20220521
  Transmission Date: 20220720
  Serious: Yes (Hospitalization)
  Sender: FDA-Public Use
  Company Number: FR-ROCHE-3070222

PATIENT
  Age: 36 Year
  Sex: Female
  Weight: 53 kg

DRUGS (7)
  1. ATEZOLIZUMAB [Suspect]
     Active Substance: ATEZOLIZUMAB
     Indication: Soft tissue sarcoma
     Dosage: LAST ADMINISTRATION BEFORE SAE WAS ON 14/MAR/2022
     Route: 042
     Dates: start: 20220301, end: 20220314
  2. COBIMETINIB [Suspect]
     Active Substance: COBIMETINIB
     Indication: Soft tissue sarcoma
     Dosage: EVERY 1 DAY(S) 21 DAYS ON / 7 DAYS OFF
     Route: 048
     Dates: start: 20220301
  3. PREDNISOLONE SODIUM METAZOATE [Concomitant]
     Active Substance: PREDNISOLONE SODIUM METAZOATE
     Indication: Tumour pain
     Route: 048
     Dates: start: 20220209
  4. SKENAN [Concomitant]
     Active Substance: MORPHINE SULFATE
     Indication: Tumour pain
     Route: 048
     Dates: start: 20220209
  5. OMEPRAZOLE [Concomitant]
     Active Substance: OMEPRAZOLE
  6. LYRICA [Concomitant]
     Active Substance: PREGABALIN
  7. MORPHINE SULFATE [Concomitant]
     Active Substance: MORPHINE SULFATE
     Indication: Tumour pain
     Route: 048
     Dates: start: 20220209

REACTIONS (2)
  - Oedema peripheral [Not Recovered/Not Resolved]
  - Motor dysfunction [Not Recovered/Not Resolved]

NARRATIVE: CASE EVENT DATE: 20220324
